FAERS Safety Report 13376511 (Version 9)
Quarter: 2021Q2

REPORT INFORMATION
  Report Type: Spontaneous
  Country: US (occurrence: US)
  Receive Date: 20170328
  Receipt Date: 20210607
  Transmission Date: 20210716
  Serious: Yes (Other)
  Sender: FDA-Public Use
  Company Number: US-PFIZER INC-2017133023

PATIENT
  Age: 73 Year
  Sex: Female

DRUGS (2)
  1. PREMARIN [Suspect]
     Active Substance: ESTROGENS, CONJUGATED
     Indication: VULVOVAGINAL DRYNESS
     Dosage: UNK, 2X/WEEK (A HALF OR LESS. DOESN^T FILL TUBE UP, TWICE A WEEK)
     Route: 067
  2. PREMARIN [Suspect]
     Active Substance: ESTROGENS, CONJUGATED
     Indication: VULVOVAGINAL DISCOMFORT

REACTIONS (26)
  - Expired product administered [Unknown]
  - Arthritis [Unknown]
  - Oral pain [Not Recovered/Not Resolved]
  - Glossodynia [Unknown]
  - Oral discomfort [Unknown]
  - Gait disturbance [Unknown]
  - Deafness neurosensory [Unknown]
  - Fall [Unknown]
  - Illness [Unknown]
  - Malaise [Unknown]
  - Oral fungal infection [Unknown]
  - Infective glossitis [Unknown]
  - Pain [Unknown]
  - Osteoporosis [Unknown]
  - Throat irritation [Unknown]
  - Drug ineffective [Unknown]
  - Breast disorder [Unknown]
  - Nerve injury [Unknown]
  - Bladder prolapse [Unknown]
  - Oral viral infection [Unknown]
  - Cataract [Unknown]
  - Drug dependence [Unknown]
  - Vulvovaginal burning sensation [Unknown]
  - Tongue discomfort [Unknown]
  - Intentional product misuse [Unknown]
  - Dizziness [Unknown]

NARRATIVE: CASE EVENT DATE: 2018
